FAERS Safety Report 4982918-4 (Version None)
Quarter: 2006Q2

REPORT INFORMATION
  Report Type: 
  Country: None (occurrence: None)
  Receive Date: 20060420
  Receipt Date: 20060411
  Transmission Date: 20061013
  Serious: Yes (Other)
  Sender: FDA-Public Use
  Company Number: 163-20785-06040506

PATIENT
  Age: 82 Year
  Sex: Male

DRUGS (9)
  1. THALOMID [Suspect]
     Indication: MYELODYSPLASTIC SYNDROME
     Dosage: 100 MG, HS, ORAL
     Route: 048
     Dates: start: 20060210, end: 20060301
  2. ALBUTEROL [Concomitant]
  3. PREDNISONE TAB [Concomitant]
  4. FLOVENT [Concomitant]
  5. HYDROCHLOROTHIAZIDE [Concomitant]
  6. ATENOLOL [Concomitant]
  7. SEREVENT [Concomitant]
  8. ASPIRIN [Concomitant]
  9. IMDUR [Concomitant]

REACTIONS (4)
  - CONDITION AGGRAVATED [None]
  - CORONARY ARTERY DISEASE [None]
  - DYSPNOEA EXERTIONAL [None]
  - FATIGUE [None]
